FAERS Safety Report 20994141 (Version 2)
Quarter: 2022Q2

REPORT INFORMATION
  Report Type: Spontaneous
  Country: CZ (occurrence: CZ)
  Receive Date: 20220622
  Receipt Date: 20220627
  Transmission Date: 20220720
  Serious: Yes (Other)
  Sender: FDA-Public Use
  Company Number: CZ-EGIS-HUN-2022-0513

PATIENT
  Age: 60 Year
  Sex: Female

DRUGS (6)
  1. LETROZOLE [Suspect]
     Active Substance: LETROZOLE
     Indication: Invasive lobular breast carcinoma
     Dosage: 2.5 MILLIGRAM, (STANDARD DOSING: CONTINUOUSLY IN COMBINATION WITH RIBOCICLIB)
     Route: 065
     Dates: start: 202012
  2. LETROZOLE [Suspect]
     Active Substance: LETROZOLE
     Dosage: UNK
     Route: 048
     Dates: start: 2020
  3. LETROZOLE [Suspect]
     Active Substance: LETROZOLE
     Dosage: 2.5 MILLIGRAM, CYCLE(DAY 1-21 IN 28-DAY CYCLE)
     Route: 065
     Dates: start: 202012
  4. RIBOCICLIB [Suspect]
     Active Substance: RIBOCICLIB
     Indication: Invasive lobular breast carcinoma
     Dosage: 600 MILLIGRAM,CYCLE (ON DAYS 1-21 IN 28 DAYS CYCLE IN COMBINATION WITH LETROZOLE)
     Route: 048
     Dates: start: 202012, end: 202102
  5. RIBOCICLIB [Suspect]
     Active Substance: RIBOCICLIB
     Dosage: 400 MILLIGRAM,CYCLE(ON DAYS 1-21 IN 28 DAYS THERAPEUTIC CYCLE IN COMBINATION WITH LETROZOLE)
     Route: 065
     Dates: start: 2021
  6. TAMOXIFEN [Concomitant]
     Active Substance: TAMOXIFEN
     Indication: Cancer hormonal therapy
     Dosage: UNK
     Route: 065

REACTIONS (2)
  - Myelosuppression [Recovered/Resolved]
  - Neutropenia [Recovered/Resolved]

NARRATIVE: CASE EVENT DATE: 20210201
